FAERS Safety Report 11025487 (Version 1)
Quarter: 2015Q2

REPORT INFORMATION
  Report Type: Spontaneous
  Country: CA (occurrence: CA)
  Receive Date: 20150414
  Receipt Date: 20150414
  Transmission Date: 20150821
  Serious: Yes (Death)
  Sender: FDA-Public Use
  Company Number: CA-TEVA-554263ACC

PATIENT
  Age: 80 Year
  Sex: Female
  Weight: 83.99 kg

DRUGS (1)
  1. NYSTATIN ORAL SUSPENSION 100000UNIT/ML USP [Suspect]
     Active Substance: NYSTATIN
     Indication: ORAL CANDIDIASIS
     Dosage: FORM STENGTH: 100000 UNIT/ML
     Route: 048

REACTIONS (6)
  - Dyspnoea [Fatal]
  - Rash [Fatal]
  - Peripheral swelling [Fatal]
  - Swelling face [Fatal]
  - Pruritus [Fatal]
  - Skin exfoliation [Fatal]
